FAERS Safety Report 18576347 (Version 1)
Quarter: 2020Q4

REPORT INFORMATION
  Report Type: Spontaneous
  Country: US (occurrence: US)
  Receive Date: 20201203
  Receipt Date: 20201203
  Transmission Date: 20210114
  Serious: Yes (Other)
  Sender: FDA-Public Use
  Company Number: US-002147023-PHHY2014US113072

PATIENT
  Age: 18 Year
  Sex: Male

DRUGS (2)
  1. TOBRAMYCIN MYLAN [Suspect]
     Active Substance: TOBRAMYCIN
     Indication: INFECTION
     Dosage: UNK
  2. TOBRAMYCIN MYLAN [Suspect]
     Active Substance: TOBRAMYCIN
     Indication: URINARY TRACT INFECTION

REACTIONS (3)
  - Nephropathy toxic [Unknown]
  - Renal tubular necrosis [Recovered/Resolved]
  - Acute kidney injury [Recovered/Resolved]
